FAERS Safety Report 6290295-4 (Version None)
Quarter: 2009Q3

REPORT INFORMATION
  Report Type: 
  Country: None (occurrence: None)
  Receive Date: 20090730
  Receipt Date: 20090211
  Transmission Date: 20100115
  Serious: No
  Sender: FDA-Public Use
  Company Number: US-BRISTOL-MYERS SQUIBB COMPANY-14503023

PATIENT
  Age: 65 Year
  Sex: Female

DRUGS (3)
  1. COUMADIN [Suspect]
     Dosage: TO BE RESTARTED AT 1.5 MG.
     Dates: start: 20090201
  2. WARFARIN SODIUM [Suspect]
     Indication: CEREBROVASCULAR ACCIDENT
     Dosage: STARTED TWO WEEKS AGO.
  3. METOPROLOL TARTRATE [Concomitant]

REACTIONS (1)
  - INTERNATIONAL NORMALISED RATIO INCREASED [None]
